FAERS Safety Report 4823255-8 (Version None)
Quarter: 2005Q4

REPORT INFORMATION
  Report Type: 
  Country: None (occurrence: None)
  Receive Date: 20051107
  Receipt Date: 20051024
  Transmission Date: 20060501
  Serious: Yes (Other)
  Sender: FDA-Public Use
  Company Number: 8013092

PATIENT
  Sex: Female

DRUGS (4)
  1. KEPPRA [Suspect]
     Dosage: 125 MG
  2. LAMOTRIGINE [Suspect]
     Dosage: 200 MG
  3. LAMOTRIGINE [Suspect]
     Dosage: 300 MG
     Dates: start: 20050608
  4. LAMOTRIGINE [Suspect]
     Dosage: 400 MG
     Dates: start: 20050810

REACTIONS (3)
  - AMNIOTIC CAVITY DISORDER [None]
  - ANTEPARTUM HAEMORRHAGE [None]
  - DRUG EXPOSURE DURING PREGNANCY [None]
